FAERS Safety Report 9663190 (Version 1)
Quarter: 2013Q4

REPORT INFORMATION
  Report Type: Report from Study
  Country: BR (occurrence: BR)
  Receive Date: 20131101
  Receipt Date: 20131101
  Transmission Date: 20140711
  Serious: Yes (Other)
  Sender: FDA-Public Use
  Company Number: BR-ROCHE-1295692

PATIENT
  Age: 61 Year
  Sex: Female
  Weight: 74 kg

DRUGS (3)
  1. INTERFERON ALFA-2A [Suspect]
     Indication: CHRONIC HEPATITIS C
     Route: 065
     Dates: start: 20011112
  2. RIBAVIRIN [Suspect]
     Indication: CHRONIC HEPATITIS C
     Route: 065
     Dates: start: 20011112
  3. RIBAVIRIN [Suspect]
     Route: 065
     Dates: start: 20120130

REACTIONS (2)
  - No therapeutic response [Unknown]
  - Leukopenia [Unknown]
